FAERS Safety Report 9925060 (Version 2)
Quarter: 2014Q1

REPORT INFORMATION
  Report Type: Spontaneous
  Country: US (occurrence: US)
  Receive Date: 20140226
  Receipt Date: 20140226
  Transmission Date: 20141002
  Serious: Yes (Disabling)
  Sender: FDA-Public Use
  Company Number: US-PFIZER INC-2013068501

PATIENT
  Age: 51 Year
  Sex: Female

DRUGS (5)
  1. LYRICA [Suspect]
     Indication: PAIN
     Dosage: 75 MG, 3X/DAY
  2. NORVASC [Suspect]
     Indication: HYPERTENSION
     Dosage: 5 MG ONE TABLET EVERY PM
  3. PROTONIX [Suspect]
     Indication: GASTROOESOPHAGEAL REFLUX DISEASE
     Dosage: 40 MG, 2X/DAY
  4. CORTEF [Suspect]
     Indication: ADDISON^S DISEASE
     Dosage: 10 MG EVERY AM AND 5 MG EVERY PM
  5. CORTEF [Suspect]
     Dosage: 100 MG DAILY AS NEEDED

REACTIONS (1)
  - Arthritis [Unknown]
